FAERS Safety Report 4464066-5 (Version None)
Quarter: 2004Q4

REPORT INFORMATION
  Report Type: 
  Country: None (occurrence: None)
  Receive Date: 20041001
  Receipt Date: 20040922
  Transmission Date: 20050328
  Serious: Yes (Hospitalization)
  Sender: FDA-Public Use
  Company Number: US-BRISTOL-MYERS SQUIBB COMPANY-12709044

PATIENT
  Age: 52 Year
  Sex: Female
  Weight: 68 kg

DRUGS (2)
  1. COUMADIN [Suspect]
     Indication: HEART VALVE REPLACEMENT
     Dosage: BEGAN COUMADIN IN 1997, A FEW MONTHS AGO, STOPPED COUMADIN + BEGAN WARFARIN
     Route: 048
     Dates: start: 19970101
  2. DARVOCET [Concomitant]
     Indication: HEADACHE

REACTIONS (2)
  - GASTROOESOPHAGEAL REFLUX DISEASE [None]
  - INTERNATIONAL NORMALISED RATIO ABNORMAL [None]
